FAERS Safety Report 4652357-4 (Version None)
Quarter: 2005Q2

REPORT INFORMATION
  Report Type: 
  Country: None (occurrence: None)
  Receive Date: 20050504
  Receipt Date: 20050428
  Transmission Date: 20051028
  Serious: Yes (Hospitalization)
  Sender: FDA-Public Use
  Company Number: FR-GLAXOSMITHKLINE-B0379771A

PATIENT
  Age: 26 Year
  Sex: Male
  Weight: 85 kg

DRUGS (2)
  1. ZINNAT [Suspect]
     Indication: SINUSITIS
     Dosage: 250MG TWICE PER DAY
     Route: 048
     Dates: start: 20050320, end: 20050327
  2. ADVIL [Suspect]
     Route: 048
     Dates: start: 20050320, end: 20050327

REACTIONS (8)
  - DYSPHAGIA [None]
  - DYSURIA [None]
  - MOUTH HAEMORRHAGE [None]
  - MUCOUS MEMBRANE DISORDER [None]
  - ORAL MUCOSAL ERUPTION [None]
  - PHARYNGEAL LESION [None]
  - STEVENS-JOHNSON SYNDROME [None]
  - THROAT LESION [None]
